FAERS Safety Report 25030126 (Version 1)
Quarter: 2025Q1

REPORT INFORMATION
  Report Type: Report from Study
  Country: US (occurrence: US)
  Receive Date: 20250303
  Receipt Date: 20250303
  Transmission Date: 20250409
  Serious: Yes (Hospitalization, Other)
  Sender: GILEAD
  Company Number: US-GILEAD-2025-0705491

PATIENT
  Sex: Male

DRUGS (4)
  1. AZTREONAM LYSINE [Suspect]
     Active Substance: AZTREONAM LYSINE
     Indication: Microbiology test abnormal
     Dosage: 75 MG, TID (28 DAYS ON AND 28 DAYS OFF)
     Route: 055
  2. PULMOZYME [Concomitant]
     Active Substance: DORNASE ALFA
  3. SABRIL [Concomitant]
     Active Substance: VIGABATRIN
  4. TOBRAMYCIN SULFATE [Concomitant]
     Active Substance: TOBRAMYCIN SULFATE

REACTIONS (4)
  - Viral infection [Unknown]
  - Pneumonia bacterial [Unknown]
  - Malaise [Unknown]
  - Product use in unapproved indication [Not Recovered/Not Resolved]
